FAERS Safety Report 23322459 (Version 1)
Quarter: 2023Q4

REPORT INFORMATION
  Report Type: Spontaneous
  Country: FR (occurrence: FR)
  Receive Date: 20231220
  Receipt Date: 20231220
  Transmission Date: 20240109
  Serious: Yes (Death, Other)
  Sender: FDA-Public Use
  Company Number: None

PATIENT
  Age: 73 Year
  Sex: Male
  Weight: 79 kg

DRUGS (4)
  1. OPDIVO [Suspect]
     Active Substance: NIVOLUMAB
     Indication: Neoadjuvant therapy
     Route: 042
     Dates: start: 20230523, end: 20230719
  2. OPDIVO [Suspect]
     Active Substance: NIVOLUMAB
     Indication: Adenocarcinoma gastric
  3. YERVOY [Suspect]
     Active Substance: IPILIMUMAB
     Indication: Adenocarcinoma gastric
     Route: 042
     Dates: start: 20230523, end: 20230704
  4. YERVOY [Suspect]
     Active Substance: IPILIMUMAB
     Indication: Neoadjuvant therapy

REACTIONS (7)
  - Gastrointestinal procedural complication [Fatal]
  - Haemoperitoneum [Fatal]
  - Immune-mediated cystitis [Recovering/Resolving]
  - Immune-mediated enterocolitis [Recovering/Resolving]
  - Cardio-respiratory arrest [Fatal]
  - Shock haemorrhagic [Fatal]
  - Off label use [Unknown]

NARRATIVE: CASE EVENT DATE: 20230801
